FAERS Safety Report 16313120 (Version 2)
Quarter: 2021Q1

REPORT INFORMATION
  Report Type: Other
  Country: IL (occurrence: IL)
  Receive Date: 20190515
  Receipt Date: 20210127
  Transmission Date: 20210419
  Serious: No
  Sender: FDA-Public Use
  Company Number: IL-ROCHE-2313274

PATIENT
  Age: 36 Year
  Sex: Female

DRUGS (4)
  1. FLAMEXIN [Concomitant]
     Active Substance: PIROXICAM BETADEX
  2. ATORVASTATIN [Concomitant]
     Active Substance: ATORVASTATIN
  3. PLAQUENIL [Concomitant]
     Active Substance: HYDROXYCHLOROQUINE SULFATE
  4. OCREVUS [Suspect]
     Active Substance: OCRELIZUMAB
     Indication: RELAPSING-REMITTING MULTIPLE SCLEROSIS
     Dosage: 600MG ONCE EVERY 6 MONTHS
     Route: 042
     Dates: start: 20180424

REACTIONS (8)
  - Asthenia [Recovering/Resolving]
  - Oropharyngeal pain [Recovered/Resolved]
  - Product dose omission issue [Unknown]
  - Pyrexia [Recovered/Resolved]
  - Rhinorrhoea [Recovered/Resolved]
  - Cough [Recovered/Resolved]
  - Myalgia [Recovering/Resolving]
  - Sinusitis [Not Recovered/Not Resolved]

NARRATIVE: CASE EVENT DATE: 202004
